FAERS Safety Report 8053335-8 (Version None)
Quarter: 2012Q1

REPORT INFORMATION
  Report Type: 
  Country: None (occurrence: None)
  Receive Date: 20120118
  Receipt Date: 20120106
  Transmission Date: 20120608
  Serious: Yes (Other)
  Sender: FDA-Public Use
  Company Number: ES-ROCHE-762888

PATIENT

DRUGS (2)
  1. SORAFENIB [Suspect]
     Indication: NEUROENDOCRINE TUMOUR
     Dosage: DOSE AND FREQUENCY: 200MG TWICE DAILY ON DAYS 1 TO 5 OF EACH WEEK
     Route: 065
  2. AVASTIN [Suspect]
     Indication: NEUROENDOCRINE TUMOUR
     Dosage: ON DAY 1 OF THE 1ST WEEK
     Route: 065

REACTIONS (3)
  - PALMAR-PLANTAR ERYTHRODYSAESTHESIA SYNDROME [None]
  - ASTHENIA [None]
  - HYPERTENSION [None]
